FAERS Safety Report 5151549-8 (Version None)
Quarter: 2006Q4

REPORT INFORMATION
  Report Type: 
  Country: None (occurrence: None)
  Receive Date: 20061115
  Receipt Date: 20061101
  Transmission Date: 20070319
  Serious: Yes (Other)
  Sender: FDA-Public Use
  Company Number: US-ELI_LILLY_AND_COMPANY-US200611000312

PATIENT
  Age: 85 Year
  Sex: Female

DRUGS (2)
  1. FORTEO [Suspect]
     Indication: OSTEOPOROSIS
     Dosage: UNK, UNK
     Dates: start: 20051101, end: 20051101
  2. FORTEO [Suspect]
     Dates: start: 20051201

REACTIONS (3)
  - BLOOD CALCIUM INCREASED [None]
  - INSOMNIA [None]
  - PARATHYROIDECTOMY [None]
